FAERS Safety Report 23959770 (Version 1)
Quarter: 2024Q2

REPORT INFORMATION
  Report Type: Spontaneous
  Country: PL (occurrence: PL)
  Receive Date: 20240611
  Receipt Date: 20240611
  Transmission Date: 20240715
  Serious: Yes (Hospitalization, Other)
  Sender: FDA-Public Use
  Company Number: PL-MYLANLABS-2024M1046842

PATIENT
  Age: 75 Year
  Sex: Female

DRUGS (1)
  1. METHOTREXATE [Suspect]
     Active Substance: METHOTREXATE
     Indication: Rheumatoid arthritis
     Dosage: 15 MG, QW
     Route: 058

REACTIONS (3)
  - Erysipelas [Recovering/Resolving]
  - Infection in an immunocompromised host [Recovering/Resolving]
  - Disease recurrence [Recovered/Resolved]
